FAERS Safety Report 15252235 (Version 1)
Quarter: 2018Q3

REPORT INFORMATION
  Report Type: Report from Study
  Country: US (occurrence: US)
  Receive Date: 20180807
  Receipt Date: 20180807
  Transmission Date: 20181010
  Serious: Yes (Hospitalization)
  Sender: FDA-Public Use
  Company Number: US-SHIRE-US201830018

PATIENT
  Sex: Female
  Weight: 58.91 kg

DRUGS (1)
  1. GATTEX [Suspect]
     Active Substance: TEDUGLUTIDE\WATER
     Indication: ANAL INCONTINENCE
     Dosage: UNK, 1X/DAY:QD
     Route: 058

REACTIONS (1)
  - Dehydration [Unknown]
